FAERS Safety Report 8295994-0 (Version None)
Quarter: 2012Q2

REPORT INFORMATION
  Report Type: 
  Country: None (occurrence: None)
  Receive Date: 20120418
  Receipt Date: 20120329
  Transmission Date: 20120825
  Serious: Yes (Other)
  Sender: FDA-Public Use
  Company Number: US-TEVA-2011005027

PATIENT
  Sex: Female
  Weight: 87.622 kg

DRUGS (11)
  1. INSULIN ASPART [Concomitant]
     Indication: DIABETES MELLITUS
  2. CALAMINE [Concomitant]
  3. AMMONIUM LACTATE [Concomitant]
  4. PROVIGIL [Suspect]
     Indication: HYPERSOMNIA
     Dosage: 200 MILLIGRAM;
     Route: 048
     Dates: start: 20100901, end: 20111004
  5. MULTI-VITAMINS [Concomitant]
     Indication: PREGNANCY
     Dosage: 1 DOSAGE FORMS;
     Dates: start: 20110929
  6. ONDANSETRON [Concomitant]
     Indication: DEPRESSION
     Dates: start: 20110929
  7. SERTRALINE HYDROCHLORIDE [Concomitant]
     Indication: DEPRESSION
     Dosage: 50 MILLIGRAM;
  8. OMEPRAZOLE [Concomitant]
     Indication: GASTROOESOPHAGEAL REFLUX DISEASE
     Dosage: 20 MILLIGRAM;
  9. ASCORBIC ACID [Concomitant]
     Indication: SUPPLEMENTATION THERAPY
     Dosage: 1000 MILLIGRAM;
  10. INSULIN GLARGINE [Concomitant]
     Indication: DIABETES MELLITUS
  11. LACTOBACILLUS ACIDOPHILUS [Concomitant]
     Indication: PROBIOTIC THERAPY
     Dosage: 1 DOSAGE FORMS;

REACTIONS (2)
  - SUPRAVENTRICULAR TACHYCARDIA [None]
  - MATERNAL EXPOSURE DURING PREGNANCY [None]
